FAERS Safety Report 4698314-3 (Version None)
Quarter: 2005Q2

REPORT INFORMATION
  Report Type: 
  Country: None (occurrence: None)
  Receive Date: 20050623
  Receipt Date: 20050616
  Transmission Date: 20051028
  Serious: Yes (Other)
  Sender: FDA-Public Use
  Company Number: US-ABBOTT-05P-163-0303361-00

PATIENT
  Sex: Female
  Weight: 90.8 kg

DRUGS (7)
  1. TRICOR [Suspect]
     Indication: HYPERLIPIDAEMIA
     Route: 048
     Dates: start: 20020101, end: 20021101
  2. AMLODIPINE BESYLATE [Concomitant]
     Indication: BLOOD PRESSURE INCREASED
     Route: 048
  3. RYTHMOL [Concomitant]
     Indication: ARRHYTHMIA
     Route: 048
     Dates: start: 20000101
  4. AMLODIPINE BESYLATE [Concomitant]
     Indication: BLOOD PRESSURE
     Route: 048
  5. ACETYLSALICYLIC ACID SRT [Concomitant]
     Indication: MYOCARDIAL INFARCTION
     Route: 048
     Dates: start: 20000101
  6. MULTIVITAMIN [Concomitant]
     Indication: ROUTINE HEALTH MAINTENANCE
     Route: 048
  7. GLUCOSAMINE W/CHONDROITIN SULFATES [Concomitant]
     Indication: ROUTINE HEALTH MAINTENANCE
     Route: 048

REACTIONS (9)
  - ARTHRALGIA [None]
  - ASTHENIA [None]
  - DYSPNOEA [None]
  - FALL [None]
  - HAEMATOCHEZIA [None]
  - MUSCLE SPASMS [None]
  - MYOCARDIAL INFARCTION [None]
  - SLEEP DISORDER [None]
  - TRAUMATIC FRACTURE [None]
